FAERS Safety Report 8021486-X (Version None)
Quarter: 2012Q1

REPORT INFORMATION
  Report Type: 
  Country: None (occurrence: None)
  Receive Date: 20120104
  Receipt Date: 20111222
  Transmission Date: 20120608
  Serious: Yes (Hospitalization)
  Sender: FDA-Public Use
  Company Number: FR-SANOFI-AVENTIS-2011SA030134

PATIENT
  Age: 72 Year
  Sex: Female

DRUGS (5)
  1. CYCLOPHOSPHAMIDE [Suspect]
     Indication: BREAST CANCER
     Dates: start: 20110427, end: 20110427
  2. CORTICOSTEROIDS [Concomitant]
     Indication: PREMEDICATION
     Dates: start: 20110401, end: 20110401
  3. LEVOTHYROXINE SODIUM [Concomitant]
  4. TRASTUZUMAB [Suspect]
     Indication: BREAST CANCER
     Dates: start: 20110427, end: 20110427
  5. TAXOTERE [Suspect]
     Indication: BREAST CANCER
     Route: 041
     Dates: start: 20110427, end: 20110427

REACTIONS (6)
  - PETECHIAE [None]
  - HAEMOLYTIC ANAEMIA [None]
  - THROMBOCYTOPENIC PURPURA [None]
  - ANTI-PLATELET ANTIBODY POSITIVE [None]
  - EPISTAXIS [None]
  - PLATELET COUNT DECREASED [None]
